FAERS Safety Report 14500161 (Version 2)
Quarter: 2019Q2

REPORT INFORMATION
  Report Type: Spontaneous
  Country: US (occurrence: US)
  Receive Date: 20180207
  Receipt Date: 20190426
  Transmission Date: 20190711
  Serious: Yes (Other)
  Sender: FDA-Public Use
  Company Number: US-FOUNDATIONCONSUMERHC-2017-US-014885

PATIENT
  Age: 35 Year
  Sex: Female
  Weight: 99.79 kg

DRUGS (1)
  1. PLAN B ONE-STEP [Suspect]
     Active Substance: LEVONORGESTREL
     Indication: POST COITAL CONTRACEPTION
     Dosage: 1 TABLET PO
     Route: 048
     Dates: start: 20171118, end: 20171118

REACTIONS (3)
  - Pregnancy after post coital contraception [Unknown]
  - Breast tenderness [Unknown]
  - Drug ineffective [Unknown]

NARRATIVE: CASE EVENT DATE: 201711
